FAERS Safety Report 23281624 (Version 3)
Quarter: 2024Q1

REPORT INFORMATION
  Report Type: Report from Study
  Country: ES (occurrence: ES)
  Receive Date: 20231211
  Receipt Date: 20240318
  Transmission Date: 20240410
  Serious: Yes (Other)
  Sender: FDA-Public Use
  Company Number: ES-TAKEDA-2023TUS118784

PATIENT
  Age: 4 Year
  Sex: Male

DRUGS (20)
  1. TEDUGLUTIDE [Suspect]
     Active Substance: TEDUGLUTIDE
     Indication: Short-bowel syndrome
     Dosage: 0.5 MILLIGRAM, QD
     Route: 042
     Dates: start: 20200813, end: 20201119
  2. TEDUGLUTIDE [Suspect]
     Active Substance: TEDUGLUTIDE
     Indication: Short-bowel syndrome
     Dosage: 0.5 MILLIGRAM, QD
     Route: 042
     Dates: start: 20200813, end: 20201119
  3. TEDUGLUTIDE [Suspect]
     Active Substance: TEDUGLUTIDE
     Indication: Short-bowel syndrome
     Dosage: 0.5 MILLIGRAM, QD
     Route: 042
     Dates: start: 20200813, end: 20201119
  4. TEDUGLUTIDE [Suspect]
     Active Substance: TEDUGLUTIDE
     Indication: Short-bowel syndrome
     Dosage: 0.5 MILLIGRAM, QD
     Route: 042
     Dates: start: 20200813, end: 20201119
  5. TEDUGLUTIDE [Suspect]
     Active Substance: TEDUGLUTIDE
     Dosage: 0.5 MILLIGRAM, QD
     Route: 042
     Dates: start: 20201119, end: 20210531
  6. TEDUGLUTIDE [Suspect]
     Active Substance: TEDUGLUTIDE
     Dosage: 0.5 MILLIGRAM, QD
     Route: 042
     Dates: start: 20201119, end: 20210531
  7. TEDUGLUTIDE [Suspect]
     Active Substance: TEDUGLUTIDE
     Dosage: 0.5 MILLIGRAM, QD
     Route: 042
     Dates: start: 20201119, end: 20210531
  8. TEDUGLUTIDE [Suspect]
     Active Substance: TEDUGLUTIDE
     Dosage: 0.5 MILLIGRAM, QD
     Route: 042
     Dates: start: 20201119, end: 20210531
  9. TEDUGLUTIDE [Suspect]
     Active Substance: TEDUGLUTIDE
     Dosage: 0.5 MILLIGRAM, QD
     Route: 042
     Dates: start: 20210531, end: 20211001
  10. TEDUGLUTIDE [Suspect]
     Active Substance: TEDUGLUTIDE
     Dosage: 0.5 MILLIGRAM, QD
     Route: 042
     Dates: start: 20210531, end: 20211001
  11. TEDUGLUTIDE [Suspect]
     Active Substance: TEDUGLUTIDE
     Dosage: 0.5 MILLIGRAM, QD
     Route: 042
     Dates: start: 20210531, end: 20211001
  12. TEDUGLUTIDE [Suspect]
     Active Substance: TEDUGLUTIDE
     Dosage: 0.5 MILLIGRAM, QD
     Route: 042
     Dates: start: 20210531, end: 20211001
  13. TEDUGLUTIDE [Suspect]
     Active Substance: TEDUGLUTIDE
     Dosage: 0.5 MILLIGRAM, 3/WEEK
     Route: 042
     Dates: start: 20211001, end: 20220403
  14. TEDUGLUTIDE [Suspect]
     Active Substance: TEDUGLUTIDE
     Dosage: 0.5 MILLIGRAM, 3/WEEK
     Route: 042
     Dates: start: 20211001, end: 20220403
  15. TEDUGLUTIDE [Suspect]
     Active Substance: TEDUGLUTIDE
     Dosage: 0.5 MILLIGRAM, 3/WEEK
     Route: 042
     Dates: start: 20211001, end: 20220403
  16. TEDUGLUTIDE [Suspect]
     Active Substance: TEDUGLUTIDE
     Dosage: 0.5 MILLIGRAM, 3/WEEK
     Route: 042
     Dates: start: 20211001, end: 20220403
  17. CHOLECALCIFEROL [Concomitant]
     Active Substance: CHOLECALCIFEROL
     Indication: Vitamin D deficiency
     Dosage: 800 INTERNATIONAL UNIT, QD
     Route: 048
     Dates: start: 20231204
  18. PREDNISOLONE [Concomitant]
     Active Substance: PREDNISOLONE
     Indication: Bronchospasm
     Dosage: 15 MILLIGRAM, BID
     Route: 048
     Dates: start: 20231124, end: 20231126
  19. ALBUTEROL [Concomitant]
     Active Substance: ALBUTEROL
     Indication: Bronchospasm
     Dosage: 2 DOSAGE FORM
     Route: 055
     Dates: start: 20231124, end: 20231128
  20. Cohortan [Concomitant]
     Indication: Rectal haemorrhage
     Dosage: 1 DOSAGE FORM, BID
     Route: 061
     Dates: start: 20230525, end: 20230601

REACTIONS (2)
  - Lower respiratory tract infection [Recovered/Resolved]
  - Vitamin D deficiency [Not Recovered/Not Resolved]

NARRATIVE: CASE EVENT DATE: 20231119
